FAERS Safety Report 7985837-4 (Version None)
Quarter: 2011Q4

REPORT INFORMATION
  Report Type: 
  Country: None (occurrence: None)
  Receive Date: 20111216
  Receipt Date: 20111209
  Transmission Date: 20120403
  Serious: Yes (Other)
  Sender: FDA-Public Use
  Company Number: JP-CEPHALON-2011004088

PATIENT
  Sex: Female
  Weight: 46 kg

DRUGS (4)
  1. BENDAMUSTINE HCL [Suspect]
     Route: 042
     Dates: start: 20110413, end: 20110414
  2. BENDAMUSTINE HCL [Suspect]
     Indication: B-CELL LYMPHOMA
     Route: 042
     Dates: start: 20110120, end: 20110121
  3. BROTIZOLAM [Concomitant]
  4. BENDAMUSTINE HCL [Suspect]
     Route: 042
     Dates: start: 20110223, end: 20110224

REACTIONS (2)
  - VASCULITIS [None]
  - FEBRILE NEUTROPENIA [None]
